FAERS Safety Report 8584885-3 (Version None)
Quarter: 2012Q3

REPORT INFORMATION
  Report Type: 
  Country: None (occurrence: None)
  Receive Date: 20120810
  Receipt Date: 20120727
  Transmission Date: 20120928
  Serious: Yes (Other)
  Sender: FDA-Public Use
  Company Number: US-ELI_LILLY_AND_COMPANY-US201207009230

PATIENT
  Age: 77 Year
  Sex: Male

DRUGS (10)
  1. VALIUM [Concomitant]
  2. NORVASC [Concomitant]
  3. OMEPRAZOLE [Concomitant]
  4. CYMBALTA [Suspect]
     Dosage: 60 MG, QD
     Route: 065
     Dates: end: 20120708
  5. METFORMIN HYDROCHLORIDE [Concomitant]
  6. ASPIRIN [Concomitant]
  7. PERCOCET [Concomitant]
  8. NAPROSYN [Concomitant]
  9. CYMBALTA [Suspect]
     Indication: DEPRESSION
     Dosage: 30 MG, QD
     Route: 065
  10. LIPITOR [Concomitant]

REACTIONS (18)
  - SKIN EXFOLIATION [None]
  - NERVOUS SYSTEM DISORDER [None]
  - INSOMNIA [None]
  - DRUG WITHDRAWAL SYNDROME [None]
  - MOOD SWINGS [None]
  - HYPERHIDROSIS [None]
  - URINE FLOW DECREASED [None]
  - BLOOD PRESSURE FLUCTUATION [None]
  - PAPULE [None]
  - STOMATITIS [None]
  - INTENTIONAL DRUG MISUSE [None]
  - DIZZINESS [None]
  - ASTHENIA [None]
  - URINE COLOUR ABNORMAL [None]
  - ANGER [None]
  - DRY SKIN [None]
  - RASH PRURITIC [None]
  - PAIN [None]
